FAERS Safety Report 17483859 (Version 1)
Quarter: 2020Q1

REPORT INFORMATION
  Report Type: Spontaneous
  Country: US (occurrence: US)
  Receive Date: 20200301
  Receipt Date: 20200301
  Transmission Date: 20200409
  Serious: Yes (Other)
  Sender: FDA-Public Use
  Company Number: None

PATIENT
  Age: 36 Year
  Sex: Female
  Weight: 76.5 kg

DRUGS (1)
  1. ETONOGESTREL/ETHINYL ESTRADIOL [Suspect]
     Active Substance: ETHINYL ESTRADIOL\ETONOGESTREL
     Indication: CONTRACEPTION
     Dosage: ?          QUANTITY:1 SUPPOSITORY(IES);OTHER FREQUENCY:LEAVE IN, CHANGE M;?
     Route: 067
     Dates: start: 20200209, end: 20200223

REACTIONS (5)
  - Product substitution issue [None]
  - Headache [None]
  - Breast pain [None]
  - Abdominal pain [None]
  - Breast swelling [None]

NARRATIVE: CASE EVENT DATE: 20200210
